FAERS Safety Report 25603238 (Version 1)
Quarter: 2025Q3

REPORT INFORMATION
  Report Type: Spontaneous
  Country: US (occurrence: US)
  Receive Date: 20250724
  Receipt Date: 20250724
  Transmission Date: 20251020
  Serious: Yes (Other)
  Sender: ADAPTIS PHARMA INDIA
  Company Number: US-ADAPTIS PHARMA PRIVATE LIMITED-US-2025EDE000030

PATIENT

DRUGS (1)
  1. AMANTADINE [Suspect]
     Active Substance: AMANTADINE
     Indication: Product used for unknown indication
     Route: 065

REACTIONS (8)
  - Pneumonia [Unknown]
  - Hypoglycaemia [Unknown]
  - Mental status changes [Unknown]
  - Hypophagia [Unknown]
  - Gait inability [Unknown]
  - Leukocytosis [Unknown]
  - Urine analysis abnormal [Unknown]
  - Blood glucose decreased [Recovered/Resolved]
